FAERS Safety Report 19216529 (Version 1)
Quarter: 2021Q2

REPORT INFORMATION
  Report Type: Report from Study
  Country: US (occurrence: US)
  Receive Date: 20210505
  Receipt Date: 20210505
  Transmission Date: 20210717
  Serious: Yes (Hospitalization)
  Sender: FDA-Public Use
  Company Number: US-MYLANLABS-2021M1026260

PATIENT

DRUGS (3)
  1. MORPHINE [Suspect]
     Active Substance: MORPHINE
     Indication: SEDATIVE THERAPY
     Dosage: LOADING DOSE
     Route: 065
  2. MORPHINE [Suspect]
     Active Substance: MORPHINE
     Dosage: 0.005 MILLIGRAM/KILOGRAM, QH
     Route: 065
  3. MORPHINE [Suspect]
     Active Substance: MORPHINE
     Dosage: MAINTENANCE DOSE
     Route: 065

REACTIONS (2)
  - Off label use [Unknown]
  - Neonatal respiratory depression [Unknown]
